FAERS Safety Report 13349982 (Version 2)
Quarter: 2017Q2

REPORT INFORMATION
  Report Type: Spontaneous
  Country: DE (occurrence: DE)
  Receive Date: 20170320
  Receipt Date: 20170406
  Transmission Date: 20170830
  Serious: Yes (Hospitalization, Other)
  Sender: FDA-Public Use
  Company Number: DE-MYLANLABS-2017M1016355

PATIENT

DRUGS (4)
  1. URSOFALK [Interacting]
     Active Substance: URSODIOL
     Indication: HYPERCHOLESTEROLAEMIA
     Dosage: 500MG- 0 - 250MG
     Route: 048
     Dates: start: 20161213
  2. DEKRISTOL [Concomitant]
     Active Substance: CHOLECALCIFEROL
     Indication: VITAMIN D DEFICIENCY
     Dosage: DAILY DOSE: 20 IU INTERNATIONAL UNIT(S) EVERY 2 WEEKS
     Route: 048
     Dates: start: 201203
  3. L-THYROXIN [Concomitant]
     Active Substance: LEVOTHYROXINE SODIUM
     Indication: AUTOIMMUNE THYROIDITIS
     Dosage: 75 ?G, UNK
     Route: 048
     Dates: start: 201504
  4. SIMVASTATIN DURA [Suspect]
     Active Substance: SIMVASTATIN
     Dosage: DAILY DOSE: 20 MG MILLGRAM(S) EVERY DAYS
     Route: 048
     Dates: start: 201609, end: 20170109

REACTIONS (2)
  - Drug interaction [Recovered/Resolved]
  - Rhabdomyolysis [Recovered/Resolved]

NARRATIVE: CASE EVENT DATE: 20170110
